FAERS Safety Report 24406741 (Version 3)
Quarter: 2024Q4

REPORT INFORMATION
  Report Type: Spontaneous
  Country: GB (occurrence: GB)
  Receive Date: 20241007
  Receipt Date: 20241021
  Transmission Date: 20250114
  Serious: Yes (Other)
  Sender: LEO PHARM
  Company Number: None

PATIENT
  Age: 29 Year
  Sex: Male
  Weight: 75 kg

DRUGS (5)
  1. PROTOPIC [Suspect]
     Active Substance: TACROLIMUS
     Indication: Product used for unknown indication
     Dates: start: 20230426, end: 20231231
  2. PROTOPIC [Suspect]
     Active Substance: TACROLIMUS
     Indication: Product used for unknown indication
     Dates: start: 20230426, end: 20231231
  3. HYDROCORTISONE [Concomitant]
     Active Substance: HYDROCORTISONE
     Indication: Eczema
     Dates: start: 19950101, end: 20231231
  4. ELOCON [Suspect]
     Active Substance: MOMETASONE FUROATE
     Indication: Adverse drug reaction
     Dosage: 0.1% OINTMENT/WATER DROPS
     Dates: start: 20230621, end: 20231231
  5. MOMETASONE [Suspect]
     Active Substance: MOMETASONE
     Indication: Adverse drug reaction
     Dates: start: 20230426, end: 20230620

REACTIONS (5)
  - Insomnia [Unknown]
  - Burning sensation [Unknown]
  - Topical steroid withdrawal reaction [Recovering/Resolving]
  - Skin exfoliation [Unknown]
  - Pruritus [Unknown]

NARRATIVE: CASE EVENT DATE: 20231201
